FAERS Safety Report 18239308 (Version 3)
Quarter: 2021Q3

REPORT INFORMATION
  Report Type: Spontaneous
  Country: BR (occurrence: BR)
  Receive Date: 20200907
  Receipt Date: 20210804
  Transmission Date: 20211014
  Serious: Yes (Other)
  Sender: FDA-Public Use
  Company Number: BR-ELI_LILLY_AND_COMPANY-BR202008011859

PATIENT
  Age: 67 Year
  Sex: Female

DRUGS (4)
  1. FORTEO [Suspect]
     Active Substance: TERIPARATIDE
     Indication: OSTEOPOROSIS
     Dosage: 20 UG, UNKNOWN
     Route: 058
     Dates: start: 201904
  2. FORTEO [Suspect]
     Active Substance: TERIPARATIDE
     Dosage: 20 UG, UNKNOWN
     Route: 058
  3. FORTEO [Suspect]
     Active Substance: TERIPARATIDE
     Dosage: 20 UG, UNKNOWN
     Route: 058
  4. FORTEO [Suspect]
     Active Substance: TERIPARATIDE
     Indication: OSTEOPOROSIS
     Dosage: 20 UG, UNKNOWN
     Route: 058
     Dates: start: 201904

REACTIONS (12)
  - Injection site erythema [Unknown]
  - Injection site muscle atrophy [Unknown]
  - Malaise [Unknown]
  - Application site injury [Unknown]
  - Myalgia [Unknown]
  - Injection site pain [Unknown]
  - Dyspnoea [Recovered/Resolved]
  - Injection site oedema [Unknown]
  - Arrhythmia [Unknown]
  - Injection site atrophy [Unknown]
  - Gait inability [Unknown]
  - Rhinitis [Unknown]

NARRATIVE: CASE EVENT DATE: 202008
